FAERS Safety Report 14333365 (Version 1)
Quarter: 2017Q4

REPORT INFORMATION
  Report Type: Spontaneous
  Country: US (occurrence: US)
  Receive Date: 20171228
  Receipt Date: 20171228
  Transmission Date: 20180321
  Serious: Yes (Life-Threatening, Other)
  Sender: FDA-Public Use
  Company Number: None

PATIENT
  Age: 63 Year
  Sex: Female
  Weight: 74.84 kg

DRUGS (9)
  1. S-ADENOSYLMETHIONINE SULFATE P-TOLUENESULFONATE [Concomitant]
     Active Substance: ADEMETIONINE SULFATE TOSILATE
  2. VITAMIN D [Concomitant]
     Active Substance: CHOLECALCIFEROL
  3. KLONOPIN [Concomitant]
     Active Substance: CLONAZEPAM
  4. CA/MAG/ZN [Concomitant]
  5. HYDROXYZINE [Suspect]
     Active Substance: HYDROXYZINE HYDROCHLORIDE
     Dosage: 100 MG QHS PO
     Route: 048
  6. ELIQUIS [Concomitant]
     Active Substance: APIXABAN
  7. TIKOSYN [Suspect]
     Active Substance: DOFETILIDE
     Indication: ATRIAL FIBRILLATION
     Route: 048
     Dates: start: 20170206, end: 20170208
  8. CARVEDILOL. [Concomitant]
     Active Substance: CARVEDILOL
  9. COENZYME Q10 [Concomitant]
     Active Substance: UBIDECARENONE

REACTIONS (6)
  - Cardiac arrest [None]
  - Contraindicated product administered [None]
  - Ejection fraction decreased [None]
  - Torsade de pointes [None]
  - Bundle branch block left [None]
  - Drug interaction [None]

NARRATIVE: CASE EVENT DATE: 20170208
